FAERS Safety Report 13013032 (Version 1)
Quarter: 2016Q4

REPORT INFORMATION
  Report Type: Spontaneous
  Country: US (occurrence: US)
  Receive Date: 20161209
  Receipt Date: 20161209
  Transmission Date: 20170207
  Serious: Yes (Death)
  Sender: FDA-Public Use
  Company Number: None

PATIENT
  Age: 81 Year
  Sex: Male

DRUGS (1)
  1. KCENTRA [Suspect]
     Active Substance: COAGULATION FACTOR IX HUMAN\COAGULATION FACTOR VII HUMAN\COAGULATION FACTOR X HUMAN\PROTEIN C\PROTEIN S HUMAN\PROTHROMBIN
     Indication: THROMBOSIS PROPHYLAXIS
     Dosage: 2000UNITS ONE TIME IVPB
     Route: 040
     Dates: start: 20161031

REACTIONS (3)
  - Intestinal infarction [None]
  - Haemorrhage intracranial [None]
  - Intestinal ischaemia [None]

NARRATIVE: CASE EVENT DATE: 20161104
